FAERS Safety Report 4757220-6 (Version None)
Quarter: 2005Q3

REPORT INFORMATION
  Report Type: 
  Country: None (occurrence: None)
  Receive Date: 20050829
  Receipt Date: 20050812
  Transmission Date: 20060218
  Serious: Yes (Hospitalization)
  Sender: FDA-Public Use
  Company Number: 2005BI011977

PATIENT
  Age: 75 Year
  Sex: Female

DRUGS (12)
  1. TYSABRI [Suspect]
     Indication: MULTIPLE SCLEROSIS
     Dosage: 300 MG;QM;IV
     Route: 042
     Dates: start: 20050209, end: 20050209
  2. AVONEX [Suspect]
     Indication: MULTIPLE SCLEROSIS
     Dosage: 30 UG;QW;IM
     Route: 030
     Dates: start: 20031121
  3. LISINOPRIL [Concomitant]
  4. PROZAC [Concomitant]
  5. GLYBURIDE [Concomitant]
  6. BACLOFEN [Concomitant]
  7. PRAVACHOL [Concomitant]
  8. PROTONIX [Concomitant]
  9. PLAVIX [Concomitant]
  10. ACTONEL [Concomitant]
  11. ASPIRIN [Concomitant]
  12. ATENOLOL [Concomitant]

REACTIONS (1)
  - GASTROINTESTINAL PERFORATION [None]
